FAERS Safety Report 9632922 (Version 1)
Quarter: 2013Q4

REPORT INFORMATION
  Report Type: Spontaneous
  Country: US (occurrence: US)
  Receive Date: 20131018
  Receipt Date: 20131018
  Transmission Date: 20140711
  Serious: Yes (Hospitalization)
  Sender: FDA-Public Use
  Company Number: US-ABBVIE-13P-163-1156248-00

PATIENT
  Age: 16 Year
  Sex: Male
  Weight: 63.56 kg

DRUGS (4)
  1. HUMIRA [Suspect]
     Indication: CROHN^S DISEASE
     Dates: start: 201212, end: 201302
  2. IMURAN [Concomitant]
     Indication: CROHN^S DISEASE
  3. PROBIOTICS [Concomitant]
     Indication: ENZYME SUPPLEMENTATION
  4. SUPPLEMENTS [Concomitant]
     Indication: SUPPLEMENTATION THERAPY

REACTIONS (5)
  - Intestinal obstruction [Recovered/Resolved]
  - Rectal abscess [Recovered/Resolved]
  - Rectal fissure [Not Recovered/Not Resolved]
  - Off label use [Recovered/Resolved]
  - Gastrointestinal stoma complication [Recovered/Resolved]
